FAERS Safety Report 24421120 (Version 1)
Quarter: 2024Q4

REPORT INFORMATION
  Report Type: Spontaneous
  Country: HR (occurrence: HR)
  Receive Date: 20241010
  Receipt Date: 20241010
  Transmission Date: 20250115
  Serious: Yes (Hospitalization)
  Sender: GE HEALTHCARE
  Company Number: HR-GE HEALTHCARE-2024CSU011013

PATIENT
  Age: 76 Year
  Sex: Male

DRUGS (11)
  1. VISIPAQUE [Suspect]
     Active Substance: IODIXANOL
     Indication: Percutaneous coronary intervention
     Dosage: 250 ML, TOTAL
     Route: 013
  2. VISIPAQUE [Suspect]
     Active Substance: IODIXANOL
     Indication: Catheterisation cardiac
  3. VISIPAQUE [Suspect]
     Active Substance: IODIXANOL
     Indication: Angioplasty
  4. VISIPAQUE [Suspect]
     Active Substance: IODIXANOL
     Indication: Stent placement
  5. HEPARIN [Concomitant]
     Active Substance: HEPARIN SODIUM
     Route: 022
  6. CLOPIDOGREL [Concomitant]
     Active Substance: CLOPIDOGREL BISULFATE
     Dosage: UNK
  7. ASPIRIN [Concomitant]
     Active Substance: ASPIRIN
     Dosage: UNK
  8. PERINDOPRIL [Concomitant]
     Active Substance: PERINDOPRIL
     Dosage: UNK
  9. AMLODIPINE [Concomitant]
     Active Substance: AMLODIPINE BESYLATE
     Dosage: UNK
  10. ATORVASTATIN [Concomitant]
     Active Substance: ATORVASTATIN
     Dosage: UNK
  11. BISOPROLOL [Concomitant]
     Active Substance: BISOPROLOL\BISOPROLOL FUMARATE
     Dosage: UNK

REACTIONS (2)
  - Thyroiditis acute [Recovered/Resolved]
  - Hyperthyroidism [Recovered/Resolved]
